FAERS Safety Report 24653725 (Version 1)
Quarter: 2024Q4

REPORT INFORMATION
  Report Type: Spontaneous
  Country: US (occurrence: US)
  Receive Date: 20241122
  Receipt Date: 20241122
  Transmission Date: 20250115
  Serious: No
  Sender: NOVO NORDISK
  Company Number: US-NOVOPROD-1215196

PATIENT
  Sex: Female

DRUGS (1)
  1. TRESIBA [Suspect]
     Active Substance: INSULIN DEGLUDEC
     Indication: Type 2 diabetes mellitus
     Dosage: 34 UNITS ONCE DAILY
     Route: 058

REACTIONS (5)
  - Cardiac disorder [Unknown]
  - Chills [Unknown]
  - Depressed mood [Unknown]
  - Feeling cold [Not Recovered/Not Resolved]
  - Fatigue [Unknown]
